FAERS Safety Report 19965729 (Version 1)
Quarter: 2021Q4

REPORT INFORMATION
  Report Type: Spontaneous
  Country: US (occurrence: US)
  Receive Date: 20211018
  Receipt Date: 20211018
  Transmission Date: 20220303
  Serious: Yes (Hospitalization)
  Sender: FDA-Public Use
  Company Number: US-PFIZER INC-202100978644

PATIENT
  Age: 61 Year
  Sex: Female

DRUGS (1)
  1. EFFEXOR XR [Suspect]
     Active Substance: VENLAFAXINE HYDROCHLORIDE
     Indication: Hot flush
     Dosage: UNK

REACTIONS (3)
  - Drug withdrawal syndrome [Unknown]
  - Off label use [Unknown]
  - Drug effective for unapproved indication [Unknown]
